FAERS Safety Report 17231347 (Version 1)
Quarter: 2020Q1

REPORT INFORMATION
  Report Type: Spontaneous
  Country: US (occurrence: US)
  Receive Date: 20200103
  Receipt Date: 20200103
  Transmission Date: 20200409
  Serious: No
  Sender: FDA-Public Use
  Company Number: US-PFIZER INC-2019561003

PATIENT
  Age: 67 Year
  Sex: Male
  Weight: 72.11 kg

DRUGS (2)
  1. INLYTA [Suspect]
     Active Substance: AXITINIB
     Dosage: 1 MG, UNK
  2. INLYTA [Suspect]
     Active Substance: AXITINIB
     Dosage: 5 MG, UNK

REACTIONS (2)
  - Diarrhoea [Not Recovered/Not Resolved]
  - Gastrointestinal toxicity [Not Recovered/Not Resolved]

NARRATIVE: CASE EVENT DATE: 201912
